FAERS Safety Report 18645113 (Version 1)
Quarter: 2020Q4

REPORT INFORMATION
  Report Type: Spontaneous
  Country: US (occurrence: US)
  Receive Date: 20201221
  Receipt Date: 20201221
  Transmission Date: 20210114
  Serious: No
  Sender: FDA-Public Use
  Company Number: US-PFIZER INC-2020500612

PATIENT
  Sex: Female

DRUGS (9)
  1. FORMALDEHYDE. [Suspect]
     Active Substance: FORMALDEHYDE
     Dosage: UNK
  2. QUATERNIUM-15. [Suspect]
     Active Substance: QUATERNIUM-15
     Dosage: UNK
  3. NEOMYCIN SULFATE. [Suspect]
     Active Substance: NEOMYCIN SULFATE
     Dosage: UNK
  4. COBALT [Suspect]
     Active Substance: COBALT
     Dosage: UNK
  5. BACITRACIN. [Suspect]
     Active Substance: BACITRACIN
     Dosage: UNK
  6. HYDANTOIN [Suspect]
     Active Substance: PHENYTOIN
     Dosage: UNK
  7. GLUTARALDEHYDE [Suspect]
     Active Substance: GLUTARAL
     Dosage: UNK
  8. PROPYLENE GLYCOL [Suspect]
     Active Substance: PROPYLENE GLYCOL
     Dosage: UNK
  9. PHENOXYETHANOL [Suspect]
     Active Substance: PHENOXYETHANOL
     Dosage: UNK

REACTIONS (1)
  - Drug hypersensitivity [Unknown]
